FAERS Safety Report 7581792-X (Version None)
Quarter: 2011Q2

REPORT INFORMATION
  Report Type: 
  Country: None (occurrence: None)
  Receive Date: 20110629
  Receipt Date: 20110620
  Transmission Date: 20111010
  Serious: Yes (Other)
  Sender: FDA-Public Use
  Company Number: US-ASTRAZENECA-2011SE20049

PATIENT
  Age: 29274 Day
  Sex: Male
  Weight: 113.9 kg

DRUGS (16)
  1. DICYCLOMINE [Concomitant]
  2. TERAZOSIN HCL [Concomitant]
  3. ZYPREXA [Concomitant]
  4. SEROQUEL [Suspect]
     Indication: AGGRESSION
     Route: 048
     Dates: start: 20110406, end: 20110406
  5. OMEPRAZOLE [Concomitant]
  6. LEVOTHYROXINE SODIUM [Concomitant]
  7. LISINOPRIL [Concomitant]
  8. CICLOPIROX [Concomitant]
     Indication: ONYCHOMYCOSIS
     Dates: start: 20110407
  9. METOPROOL SUCCINATE [Concomitant]
  10. ACETOMENOPHEN [Concomitant]
  11. SEROQUEL [Suspect]
     Indication: DEMENTIA ALZHEIMER'S TYPE
     Route: 048
     Dates: start: 20110406, end: 20110406
  12. NAMENDA [Concomitant]
  13. DONEPEZIL HCL [Concomitant]
  14. ASPIRIN [Concomitant]
  15. SIMVASTATIN [Concomitant]
  16. ARICEPT [Concomitant]

REACTIONS (6)
  - OFF LABEL USE [None]
  - DISTRACTIBILITY [None]
  - AGITATION [None]
  - SOMNAMBULISM [None]
  - CONFUSIONAL STATE [None]
  - INCORRECT DOSE ADMINISTERED [None]
